FAERS Safety Report 9758384 (Version 1)
Quarter: 2013Q4

REPORT INFORMATION
  Report Type: Spontaneous
  Country: US (occurrence: US)
  Receive Date: 20131216
  Receipt Date: 20131216
  Transmission Date: 20140711
  Serious: Yes (Hospitalization)
  Sender: FDA-Public Use
  Company Number: PHHY2013US143314

PATIENT
  Age: 36 Year
  Sex: Male

DRUGS (4)
  1. PREDNISONE [Suspect]
     Indication: ACUTE LYMPHOCYTIC LEUKAEMIA
     Dosage: 120MG ON DAYS 1 - 28
     Route: 048
  2. VINCRISTINE [Suspect]
     Indication: ACUTE LYMPHOCYTIC LEUKAEMIA
     Dosage: 2 MG, UNK
     Route: 042
  3. PEGASPARGASE [Suspect]
     Indication: ACUTE LYMPHOCYTIC LEUKAEMIA
     Dosage: 5225 IU, ON DAY 4
     Route: 042
  4. DAUNORUBICIN [Suspect]
     Indication: ACUTE LYMPHOCYTIC LEUKAEMIA
     Dosage: 52 MG, UNK
     Route: 042

REACTIONS (9)
  - Myocardial infarction [Recovering/Resolving]
  - Chest pain [Recovered/Resolved]
  - Dyspnoea [Recovering/Resolving]
  - Electrocardiogram ST segment elevation [Recovering/Resolving]
  - Ejection fraction decreased [Recovering/Resolving]
  - Dizziness [Recovering/Resolving]
  - Ventricular hypokinesia [Recovering/Resolving]
  - Coronary artery occlusion [Recovering/Resolving]
  - Coronary artery thrombosis [Recovering/Resolving]
